FAERS Safety Report 8021408-1 (Version None)
Quarter: 2012Q1

REPORT INFORMATION
  Report Type: 
  Country: None (occurrence: None)
  Receive Date: 20120104
  Receipt Date: 20111230
  Transmission Date: 20120608
  Serious: Yes (Hospitalization, Other)
  Sender: FDA-Public Use
  Company Number: FR-BAYER-2012-000270

PATIENT
  Age: 68 Year
  Sex: Male

DRUGS (8)
  1. PRIMPERAN TAB [Suspect]
     Indication: HICCUPS
     Dosage: 10 MG, UNK
     Route: 042
     Dates: start: 20111118, end: 20111120
  2. NEXAVAR [Suspect]
     Indication: HEPATIC NEOPLASM MALIGNANT
     Dosage: 400 MG, BID
     Route: 048
     Dates: start: 20111110, end: 20111117
  3. VALSARTAN [Concomitant]
  4. DESLORATADINE [Concomitant]
  5. LIPIODOL [Concomitant]
     Indication: HEPATIC NEOPLASM MALIGNANT
     Dosage: UNK
     Route: 025
     Dates: start: 20111109, end: 20111109
  6. DOXORUBICIN HCL [Concomitant]
     Indication: HEPATIC NEOPLASM MALIGNANT
     Dosage: UNK
     Route: 025
     Dates: start: 20111109, end: 20111109
  7. ALLOPURINOL [Concomitant]
  8. PANTOPRAZOLE [Suspect]
     Indication: HICCUPS
     Dosage: 40 MG, QD
     Route: 042
     Dates: start: 20111117, end: 20111120

REACTIONS (7)
  - TOXIC SKIN ERUPTION [None]
  - GASTRITIS [None]
  - HYPERTHERMIA [None]
  - PORTAL HYPERTENSIVE GASTROPATHY [None]
  - HEART RATE DECREASED [None]
  - BLOOD PRESSURE INCREASED [None]
  - HICCUPS [None]
